FAERS Safety Report 5226185-5 (Version None)
Quarter: 2007Q1

REPORT INFORMATION
  Report Type: 
  Country: None (occurrence: None)
  Receive Date: 20070201
  Receipt Date: 20070123
  Transmission Date: 20070707
  Serious: Yes (Other)
  Sender: FDA-Public Use
  Company Number: US-ROCHE-479701

PATIENT
  Age: 50 Year
  Sex: Male
  Weight: 82.6 kg

DRUGS (9)
  1. PEGASYS [Suspect]
     Indication: HEPATITIS C
     Dosage: 24 WEEKS OF THERAPY COMPLETED ON 23DEC2006.
     Route: 065
     Dates: end: 20061223
  2. RIBAVIRIN [Suspect]
     Indication: HEPATITIS C
     Dosage: 24 WEEKS OF THERAPY COMPLETED ON 23DEC2006.
     Route: 065
     Dates: end: 20061223
  3. LIPITOR [Concomitant]
  4. ZETIA [Concomitant]
  5. NEXIUM [Concomitant]
  6. OXYCODONE HCL [Concomitant]
  7. TIMOLOL MALEATE [Concomitant]
     Indication: GLAUCOMA
  8. LUMIGAN [Concomitant]
     Indication: GLAUCOMA
  9. DIFFERIN [Concomitant]
     Indication: ACNE

REACTIONS (5)
  - APPENDICITIS [None]
  - COLONIC POLYP [None]
  - DEPRESSION [None]
  - DRY SKIN [None]
  - RASH [None]
